FAERS Safety Report 10974419 (Version 2)
Quarter: 2015Q2

REPORT INFORMATION
  Report Type: Spontaneous
  Country: GB (occurrence: GB)
  Receive Date: 20150401
  Receipt Date: 20150403
  Transmission Date: 20150821
  Serious: Yes (Life-Threatening, Hospitalization)
  Sender: FDA-Public Use
  Company Number: GB-PFIZER INC-2015108457

PATIENT
  Age: 47 Year
  Sex: Female

DRUGS (7)
  1. DULOXETINE [Suspect]
     Active Substance: DULOXETINE
     Dosage: 60 MG, 1X/DAY IN THE MORNING
  2. LYRICA [Suspect]
     Active Substance: PREGABALIN
     Dosage: 225 MG, 2X/DAY
     Route: 048
  3. LAMOTRIGINE. [Suspect]
     Active Substance: LAMOTRIGINE
     Dosage: 125 MG, 2X/DAY
     Route: 048
  4. OXYCONTIN [Suspect]
     Active Substance: OXYCODONE HYDROCHLORIDE
     Dosage: 80 MG, 2X/DAY
     Route: 048
  5. ZOPICLONE [Suspect]
     Active Substance: ZOPICLONE
     Dosage: 7.5 MG, AS NEEDED AT NIGHT
     Route: 048
     Dates: start: 20150228
  6. OXYCONTIN [Suspect]
     Active Substance: OXYCODONE HYDROCHLORIDE
     Dosage: UNK
     Route: 048
  7. AMITRIPTYLINE [Suspect]
     Active Substance: AMITRIPTYLINE
     Dosage: 200 MG, 1X/DAY AT NIGHT
     Route: 048

REACTIONS (1)
  - Loss of consciousness [Recovered/Resolved]
